FAERS Safety Report 7366036-6 (Version None)
Quarter: 2011Q1

REPORT INFORMATION
  Report Type: 
  Country: None (occurrence: None)
  Receive Date: 20110322
  Receipt Date: 20110308
  Transmission Date: 20110831
  Serious: Yes (Hospitalization)
  Sender: FDA-Public Use
  Company Number: US-JNJFOC-20070502363

PATIENT
  Sex: Male
  Weight: 40.45 kg

DRUGS (4)
  1. INFLIXIMAB [Suspect]
     Indication: INFLAMMATORY BOWEL DISEASE
     Route: 042
  2. INFLIXIMAB [Suspect]
     Route: 042
  3. MERCAPTOPURINE [Concomitant]
  4. MESALAMINE [Concomitant]

REACTIONS (2)
  - VOMITING [None]
  - ABDOMINAL PAIN [None]
